FAERS Safety Report 5690614-3 (Version None)
Quarter: 2008Q1

REPORT INFORMATION
  Report Type: 
  Country: None (occurrence: None)
  Receive Date: 20080331
  Receipt Date: 20080331
  Transmission Date: 20080703
  Serious: Yes (Other)
  Sender: FDA-Public Use
  Company Number: None

PATIENT
  Sex: Female
  Weight: 81.6475 kg

DRUGS (1)
  1. ZOSTRIX HP /CAPSAICEN .07 5 HEALTH CARE PRODUCTS, HI-TECH [Suspect]
     Indication: OSTEOARTHRITIS
     Dosage: THREE TEASPOONS ONE TIME TOP LESS THAN 24 HOURS
     Route: 061
     Dates: start: 20080323, end: 20080323

REACTIONS (9)
  - DISCOMFORT [None]
  - DRY SKIN [None]
  - ERYTHEMA [None]
  - INJURY [None]
  - PHARMACEUTICAL PRODUCT COMPLAINT [None]
  - RASH PAPULAR [None]
  - SKIN BURNING SENSATION [None]
  - SKIN IRRITATION [None]
  - SKIN TIGHTNESS [None]
